FAERS Safety Report 9409396 (Version 1)
Quarter: 2013Q3

REPORT INFORMATION
  Report Type: Spontaneous
  Country: US (occurrence: US)
  Receive Date: 20130719
  Receipt Date: 20130719
  Transmission Date: 20140515
  Serious: Yes (Other)
  Sender: FDA-Public Use
  Company Number: US-JNJFOC-20130705424

PATIENT
  Age: 66 Year
  Sex: Male

DRUGS (10)
  1. XARELTO [Suspect]
     Indication: CEREBROVASCULAR ACCIDENT PROPHYLAXIS
     Route: 048
     Dates: start: 20130701
  2. XARELTO [Suspect]
     Indication: ATRIAL FIBRILLATION
     Route: 048
     Dates: start: 20130701
  3. SOTALOL [Concomitant]
     Indication: CARDIAC ASSISTANCE DEVICE USER
     Route: 048
     Dates: start: 2009
  4. BABY ASPIRIN [Concomitant]
     Indication: VASCULAR GRAFT
     Route: 048
     Dates: start: 1990
  5. JANUVIA [Concomitant]
     Indication: DIABETES MELLITUS
     Route: 048
     Dates: start: 2013
  6. LISINOPRIL [Concomitant]
     Indication: BLOOD PRESSURE
     Route: 048
  7. LORATAB [Concomitant]
     Indication: PAIN
     Dosage: AS NEEDED
     Route: 048
     Dates: start: 2012
  8. TRICOR [Concomitant]
     Indication: BLOOD CHOLESTEROL
     Dosage: AS NEEDED
     Route: 048
  9. ALBUTEROL [Concomitant]
     Indication: RESPIRATORY DISORDER
     Dosage: AS NEEDED
     Route: 055
     Dates: start: 1990
  10. SPIRIVA [Concomitant]
     Indication: RESPIRATORY DISORDER
     Dosage: AS NEEDED
     Route: 055

REACTIONS (2)
  - High frequency ablation [Unknown]
  - Inappropriate schedule of drug administration [Recovered/Resolved]
